FAERS Safety Report 9601941 (Version 2)
Quarter: 2014Q2

REPORT INFORMATION
  Report Type: Spontaneous
  Country: PT (occurrence: PT)
  Receive Date: 20131007
  Receipt Date: 20140421
  Transmission Date: 20141212
  Serious: Yes (Death, Hospitalization, Other)
  Sender: FDA-Public Use
  Company Number: PT-SHIRE-ALL1-2013-06772

PATIENT
  Sex: Female

DRUGS (3)
  1. XAGRID [Suspect]
     Indication: ESSENTIAL THROMBOCYTHAEMIA
     Dosage: UNK (6-8 TABLETS/DAY), UNKNOWN
     Route: 048
  2. XAGRID [Suspect]
     Dosage: UNK
     Route: 048
     Dates: start: 2013
  3. ASPIRIN [Suspect]
     Indication: ESSENTIAL THROMBOCYTHAEMIA
     Dosage: UNK, UNKNOWN
     Route: 065

REACTIONS (3)
  - Cerebral haemorrhage [Fatal]
  - Abortion induced [Unknown]
  - Exposure during pregnancy [Recovered/Resolved]
